FAERS Safety Report 5982954-5 (Version None)
Quarter: 2008Q4

REPORT INFORMATION
  Report Type: 
  Country: None (occurrence: None)
  Receive Date: 20081205
  Receipt Date: 20081205
  Transmission Date: 20090506
  Serious: Yes (Other)
  Sender: FDA-Public Use
  Company Number: None

PATIENT
  Age: 70 Year
  Sex: Male
  Weight: 74.8435 kg

DRUGS (1)
  1. COLESTID [Suspect]
     Indication: DIARRHOEA
     Dosage: ONE TABLET TWICE DAILY PO
     Route: 048
     Dates: start: 20081128, end: 20081130

REACTIONS (2)
  - DIARRHOEA [None]
  - DRUG INEFFECTIVE [None]
